FAERS Safety Report 10361958 (Version 1)
Quarter: 2014Q1

REPORT INFORMATION
  Report Type: Spontaneous
  Country: US (occurrence: None)
  Receive Date: 20140306
  Receipt Date: 20140306
  Transmission Date: 20141002
  Serious: Yes (Other)
  Sender: FDA-Public Use
  Company Number: 163-21880-13073754

PATIENT
  Age: 83 Year
  Sex: Male
  Weight: 74.8 kg

DRUGS (15)
  1. REVLIMID [Suspect]
     Indication: CHRONIC LYMPHOCYTIC LEUKAEMIA
     Dosage: APR-2013 - TEMPORARILY INTERRUPTED
     Route: 048
     Dates: start: 201304
  2. METOPROLOL SUCCINATE (METOPROLOL SUCCINATE) (TABLETS) [Concomitant]
  3. SPIRONOLACTONE (SPIRONOLACTONE) (TABLETS) [Concomitant]
  4. ALLOPURINOL (ALLOPURINOL) (TABLETS) [Concomitant]
  5. MAGNESIUM (MAGNESIUM) (TABLETS) [Concomitant]
  6. CALCIUM + VITAMIN D (LEKOVIT CA) (TABLETS) [Concomitant]
  7. ASPIRIN (ACETYLSALICYLIC ACID) (TABLETS) [Concomitant]
  8. DIFLUCAN (FLUCONAZOLE) (TABLETS) [Concomitant]
  9. AMLODIPINE (AMLODIPINE) (TABLETS) [Concomitant]
  10. ONDANSETRON HCL (ONDANSETRON HYDROCHLORIDE) (TABLETS) [Concomitant]
  11. GABAPENTIN (GABAPENTIN) (CAPSULES) [Concomitant]
  12. DIAZEPAM (DIAZEPAM) (TABLETS) [Concomitant]
  13. AMITRIPTYLINE HCL (AMITRIPTYLINE HYDROCHLORIDE) (TABLETS) [Concomitant]
  14. ALBUTEROL SULFATE (SALBUTAMOL SULFATE) (INHALANT) [Concomitant]
  15. LIPITOR (ATORVASTATIN) (TABLETS) [Concomitant]

REACTIONS (2)
  - Cerebrovascular accident [None]
  - Bleeding time prolonged [None]
